FAERS Safety Report 17439266 (Version 1)
Quarter: 2020Q1

REPORT INFORMATION
  Report Type: Spontaneous
  Country: BR (occurrence: BR)
  Receive Date: 20200220
  Receipt Date: 20200220
  Transmission Date: 20200409
  Serious: Yes (Hospitalization, Other)
  Sender: FDA-Public Use
  Company Number: BR-GLAXOSMITHKLINE-BR2020AMR026661

PATIENT
  Sex: Male

DRUGS (1)
  1. FLIXOTIDE [Suspect]
     Active Substance: FLUTICASONE PROPIONATE
     Indication: ASTHMA
     Dosage: 50 MCG/MG
     Route: 055

REACTIONS (4)
  - Asthmatic crisis [Unknown]
  - Hospitalisation [Unknown]
  - Product complaint [Unknown]
  - Pneumonia [Not Recovered/Not Resolved]
